FAERS Safety Report 8534652-1 (Version None)
Quarter: 2012Q3

REPORT INFORMATION
  Report Type: 
  Country: None (occurrence: None)
  Receive Date: 20120724
  Receipt Date: 20120716
  Transmission Date: 20120928
  Serious: Yes (Hospitalization)
  Sender: FDA-Public Use
  Company Number: US-GLAXOSMITHKLINE-A0755432A

PATIENT
  Age: 28 Year
  Sex: Female
  Weight: 77.7 kg

DRUGS (8)
  1. GLUCOPHAGE [Concomitant]
     Dates: start: 20070101
  2. METFORMIN HYDROCHLORIDE [Concomitant]
     Dates: start: 20070101
  3. AVANDAMET [Suspect]
     Indication: TYPE 2 DIABETES MELLITUS
     Route: 048
     Dates: start: 20000101, end: 20020101
  4. AVANDIA [Suspect]
     Indication: TYPE 2 DIABETES MELLITUS
     Dosage: 4MG PER DAY
     Route: 048
     Dates: start: 20060401, end: 20080701
  5. FLU MEDICATION [Concomitant]
  6. ACTOS [Concomitant]
     Dates: start: 20050101
  7. MICRONASE [Concomitant]
     Dates: start: 20060101, end: 20070101
  8. COLD MEDICATION [Concomitant]

REACTIONS (2)
  - CARDIAC FAILURE CONGESTIVE [None]
  - MYOCARDIAL INFARCTION [None]
